FAERS Safety Report 5909233-6 (Version None)
Quarter: 2008Q4

REPORT INFORMATION
  Report Type: 
  Country: None (occurrence: None)
  Receive Date: 20081006
  Receipt Date: 20080930
  Transmission Date: 20090506
  Serious: Yes (Death, Other)
  Sender: FDA-Public Use
  Company Number: PHHY2008JP15170

PATIENT
  Sex: Male
  Weight: 75 kg

DRUGS (12)
  1. EXJADE [Suspect]
     Indication: IRON OVERLOAD
     Dosage: 1500 MG, QD
     Route: 048
     Dates: start: 20080620, end: 20080626
  2. EXJADE [Suspect]
     Dosage: 1500 MG/DAY
     Route: 048
     Dates: start: 20080710, end: 20080711
  3. EXJADE [Suspect]
     Dosage: UNK
  4. PRIMOBOLAN [Concomitant]
     Indication: APLASTIC ANAEMIA
     Dosage: 15 MG, UNK
     Route: 048
     Dates: end: 20080710
  5. MAGLAX [Concomitant]
     Indication: CONSTIPATION
     Dosage: 1500 MG, UNK
     Route: 048
     Dates: end: 20080710
  6. ALLELOCK [Concomitant]
     Indication: DERMATITIS ALLERGIC
     Dosage: 10 MG, UNK
     Route: 048
     Dates: end: 20080710
  7. MINOCYCLINE HYDROCHLORIDE [Concomitant]
     Indication: TYPE 2 DIABETES MELLITUS
     Dosage: 200 MG, UNK
     Route: 042
     Dates: start: 20080627, end: 20080701
  8. MODACIN [Concomitant]
     Indication: TYPE 2 DIABETES MELLITUS
     Dosage: 2 G, UNK
     Route: 042
     Dates: start: 20080627, end: 20080701
  9. AMBISOME [Concomitant]
     Indication: TYPE 2 DIABETES MELLITUS
     Dosage: 100 MG, UNK
     Route: 042
     Dates: start: 20080630, end: 20080701
  10. VFEND [Concomitant]
     Indication: TYPE 2 DIABETES MELLITUS
     Dosage: 200 MG, UNK
     Route: 042
     Dates: start: 20080702, end: 20080711
  11. MEROPEN [Concomitant]
     Indication: TYPE 2 DIABETES MELLITUS
     Dosage: 1 G, UNK
     Route: 042
     Dates: start: 20080702, end: 20080711
  12. DESFERAL [Concomitant]
     Dosage: 500 MG DAILY
     Dates: start: 20040107, end: 20080619

REACTIONS (13)
  - BLOOD CREATININE INCREASED [None]
  - BLOOD PRESSURE DECREASED [None]
  - BLOOD UREA INCREASED [None]
  - C-REACTIVE PROTEIN INCREASED [None]
  - HAEMATOCRIT DECREASED [None]
  - HAEMOGLOBIN DECREASED [None]
  - HYPOGLYCAEMIA [None]
  - PLATELET COUNT DECREASED [None]
  - PLEURAL EFFUSION [None]
  - PYREXIA [None]
  - SEPTIC SHOCK [None]
  - SERUM FERRITIN INCREASED [None]
  - WHITE BLOOD CELL COUNT INCREASED [None]
